FAERS Safety Report 6333249-1 (Version None)
Quarter: 2009Q3

REPORT INFORMATION
  Report Type: 
  Country: None (occurrence: None)
  Receive Date: 20090828
  Receipt Date: 20090818
  Transmission Date: 20100115
  Serious: Yes (Other)
  Sender: FDA-Public Use
  Company Number: US-BAYER-200930265NA

PATIENT
  Age: 66 Year
  Sex: Female

DRUGS (2)
  1. ULTRAVIST 150 [Suspect]
     Indication: COMPUTERISED TOMOGRAM ABDOMEN
     Dates: start: 20090817, end: 20090817
  2. GASTROVIST [Concomitant]
     Indication: COMPUTERISED TOMOGRAM ABDOMEN
     Route: 048
     Dates: start: 20090817, end: 20090817

REACTIONS (5)
  - BLOOD PRESSURE DECREASED [None]
  - HOT FLUSH [None]
  - PRESYNCOPE [None]
  - SYNCOPE [None]
  - VOMITING [None]
